FAERS Safety Report 13585538 (Version 1)
Quarter: 2017Q2

REPORT INFORMATION
  Report Type: Spontaneous
  Country: IT (occurrence: IT)
  Receive Date: 20170526
  Receipt Date: 20170526
  Transmission Date: 20170830
  Serious: Yes (Other)
  Sender: FDA-Public Use
  Company Number: IT-SA-2017SA093734

PATIENT
  Age: 82 Year
  Sex: Female
  Weight: 65 kg

DRUGS (5)
  1. CLEXANE [Concomitant]
     Active Substance: ENOXAPARIN SODIUM
     Dosage: 40 MG DOSE:1 UNIT(S)
     Route: 058
  2. PREFOLIC [Concomitant]
     Active Substance: LEUCOVORIN CALCIUM
     Dosage: 15 MG DOSE:1 UNIT(S)
     Route: 048
  3. FERLIXIT [Suspect]
     Active Substance: SODIUM FERRIC GLUCONATE COMPLEX
     Indication: ANAEMIA POSTOPERATIVE
     Dosage: INJECTABLE SOLUTION FOR ORAL AND IV USE DOSE:2 UNIT(S)
     Route: 042
     Dates: start: 20170503, end: 20170507
  4. TACHIPIRINA [Concomitant]
     Active Substance: ACETAMINOPHEN
     Dosage: 1000MG DOSE:2 UNIT(S)
     Route: 048
  5. PANTORC [Concomitant]
     Active Substance: PANTOPRAZOLE SODIUM
     Dosage: DOSE:1 UNIT(S)
     Route: 048

REACTIONS (1)
  - Injection site thrombosis [Recovering/Resolving]

NARRATIVE: CASE EVENT DATE: 20170508
